FAERS Safety Report 23201650 (Version 1)
Quarter: 2023Q4

REPORT INFORMATION
  Report Type: Spontaneous
  Country: US (occurrence: None)
  Receive Date: 20231117
  Receipt Date: 20231117
  Transmission Date: 20240110
  Serious: Yes (Hospitalization)
  Sender: FDA-Public Use
  Company Number: None

PATIENT
  Age: 13 Year
  Sex: Male
  Weight: 61 kg

DRUGS (1)
  1. BRENTUXIMAB VEDOTIN [Suspect]
     Active Substance: BRENTUXIMAB VEDOTIN

REACTIONS (13)
  - Hodgkin^s disease recurrent [None]
  - Nausea [None]
  - Vomiting [None]
  - Hypophagia [None]
  - Lactic acidosis [None]
  - Hyperglycaemia [None]
  - Weight decreased [None]
  - Diabetic ketoacidosis [None]
  - Anion gap increased [None]
  - Inflammation [None]
  - Immune system disorder [None]
  - Cytokine release syndrome [None]
  - Multiple organ dysfunction syndrome [None]

NARRATIVE: CASE EVENT DATE: 20231114
